FAERS Safety Report 5967615-0 (Version None)
Quarter: 2008Q4

REPORT INFORMATION
  Report Type: 
  Country: None (occurrence: None)
  Receive Date: 20081126
  Receipt Date: 20081114
  Transmission Date: 20090506
  Serious: Yes (Hospitalization)
  Sender: FDA-Public Use
  Company Number: PHHY2008JP28586

PATIENT

DRUGS (1)
  1. TOFRANIL [Suspect]
     Route: 048

REACTIONS (2)
  - CARDIAC FAILURE [None]
  - MYOCARDITIS [None]
